FAERS Safety Report 24343443 (Version 1)
Quarter: 2024Q3

REPORT INFORMATION
  Report Type: Spontaneous
  Country: US (occurrence: US)
  Receive Date: 20240920
  Receipt Date: 20240920
  Transmission Date: 20241017
  Serious: Yes (Other)
  Sender: BRISTOL MYERS SQUIBB
  Company Number: US-BRISTOL-MYERS SQUIBB COMPANY-2024-149049

PATIENT
  Age: 81 Year
  Sex: Male

DRUGS (11)
  1. REVLIMID [Suspect]
     Active Substance: LENALIDOMIDE
     Indication: Plasma cell myeloma
     Route: 048
     Dates: start: 20240506
  2. LISINOPRIL [Concomitant]
     Active Substance: LISINOPRIL
  3. WARFARIN SODIUM [Concomitant]
     Active Substance: WARFARIN SODIUM
  4. DEXAMETHASONE [Concomitant]
     Active Substance: DEXAMETHASONE
  5. ACETAMINOPHEN [Concomitant]
     Active Substance: ACETAMINOPHEN
  6. NITROSTAT [Concomitant]
     Active Substance: NITROGLYCERIN
     Dosage: SL
  7. GLIPIZIDE [Concomitant]
     Active Substance: GLIPIZIDE
  8. METFORMIN [Concomitant]
     Active Substance: METFORMIN HYDROCHLORIDE
  9. NAPROXEN [Concomitant]
     Active Substance: NAPROXEN
  10. SIMVASTATIN [Concomitant]
     Active Substance: SIMVASTATIN
  11. TOPROL XL [Concomitant]
     Active Substance: METOPROLOL SUCCINATE
     Dosage: XL

REACTIONS (1)
  - Pneumonia [Unknown]
